FAERS Safety Report 4678488-0 (Version None)
Quarter: 2005Q2

REPORT INFORMATION
  Report Type: 
  Country: None (occurrence: None)
  Receive Date: 20050601
  Receipt Date: 20050601
  Transmission Date: 20051028
  Serious: Yes (Death)
  Sender: FDA-Public Use
  Company Number: None

PATIENT
  Age: 79 Year
  Sex: Male
  Weight: 90 kg

DRUGS (7)
  1. COUMADIN [Suspect]
     Dates: start: 20041012, end: 20041019
  2. ALDACTONE [Concomitant]
  3. COREG [Concomitant]
  4. ALLEGRA [Concomitant]
  5. ECOTRIN [Concomitant]
  6. ALTACE [Concomitant]
  7. PRILOSEC [Concomitant]

REACTIONS (4)
  - FALL [None]
  - HAEMORRHAGE INTRACRANIAL [None]
  - UNRESPONSIVE TO PAIN STIMULI [None]
  - UNRESPONSIVE TO VERBAL STIMULI [None]
